FAERS Safety Report 13909197 (Version 1)
Quarter: 2017Q3

REPORT INFORMATION
  Report Type: Spontaneous
  Country: US (occurrence: US)
  Receive Date: 20170828
  Receipt Date: 20170828
  Transmission Date: 20171127
  Serious: No
  Sender: FDA-Public Use
  Company Number: US-ENDO PHARMACEUTICALS INC-2016-005931

PATIENT
  Age: 60 Year
  Sex: Female
  Weight: 90.8 kg

DRUGS (4)
  1. PREDNISONE TABLETS 10MG [Suspect]
     Active Substance: PREDNISONE
     Dosage: TOOK A TAPER FOR 10 DAYS AT AN UNSPECIFIED DOSE
     Route: 065
     Dates: start: 20160229, end: 201603
  2. PREDNISONE TABLETS 10MG [Suspect]
     Active Substance: PREDNISONE
     Indication: BRONCHITIS
  3. PREDNISONE TABLETS 10MG [Suspect]
     Active Substance: PREDNISONE
     Indication: PHARYNGITIS
  4. PREDNISONE TABLETS 10MG [Suspect]
     Active Substance: PREDNISONE
     Indication: SINUSITIS

REACTIONS (3)
  - Off label use [Recovered/Resolved]
  - Haematuria [Not Recovered/Not Resolved]
  - Gastrointestinal pain [Not Recovered/Not Resolved]

NARRATIVE: CASE EVENT DATE: 20160229
